FAERS Safety Report 8470448-7 (Version None)
Quarter: 2012Q2

REPORT INFORMATION
  Report Type: 
  Country: None (occurrence: None)
  Receive Date: 20120323
  Receipt Date: 20111130
  Transmission Date: 20120825
  Serious: Yes (Other)
  Sender: FDA-Public Use
  Company Number: 163-21880-11101332

PATIENT
  Age: 61 Year
  Sex: Male

DRUGS (13)
  1. PROTONIX [Concomitant]
  2. ZESTRIL [Concomitant]
  3. DECADRON [Concomitant]
  4. ASPIRIN (ACETYLSALCYCLIC ACID) [Concomitant]
  5. NITROSTAT [Concomitant]
  6. LENALIDOMIDE [Suspect]
     Indication: MULTIPLE MYELOMA
     Dosage: 25 MG, DAILY FOR 21/28 DAYS, PO ; 25 MG, DAILY FOR 21/28 DAYS, PO
     Route: 048
     Dates: start: 20111001
  7. LENALIDOMIDE [Suspect]
     Indication: MULTIPLE MYELOMA
     Dosage: 25 MG, DAILY FOR 21/28 DAYS, PO ; 25 MG, DAILY FOR 21/28 DAYS, PO
     Route: 048
     Dates: start: 20100701, end: 20111001
  8. EFFIENT (PRASUGREL HYDROCHLORIDE) [Concomitant]
  9. NORCO [Concomitant]
  10. ZOCOR [Concomitant]
  11. TENORMIN [Concomitant]
  12. PROAIR (FLUTICASONE PROPIONATE) [Concomitant]
  13. QVAR [Concomitant]

REACTIONS (2)
  - CREATININE RENAL CLEARANCE DECREASED [None]
  - ANAEMIA [None]
